FAERS Safety Report 5290587-1 (Version None)
Quarter: 2007Q2

REPORT INFORMATION
  Report Type: 
  Country: None (occurrence: None)
  Receive Date: 20070409
  Receipt Date: 20070329
  Transmission Date: 20071010
  Serious: Yes (Other)
  Sender: FDA-Public Use
  Company Number: US-AVENTIS-200711708EU

PATIENT

DRUGS (1)
  1. GAVISCON                           /01266001/ [Suspect]
     Dosage: DOSE: UNKNOWN DOSAGE
     Route: 048

REACTIONS (1)
  - HEPATIC ENZYME INCREASED [None]
